FAERS Safety Report 9869893 (Version 2)
Quarter: 2014Q2

REPORT INFORMATION
  Report Type: Spontaneous
  Country: FR (occurrence: FR)
  Receive Date: 20140205
  Receipt Date: 20140423
  Transmission Date: 20141212
  Serious: Yes (Hospitalization)
  Sender: FDA-Public Use
  Company Number: FR-ORION CORPORATION ORION PHARMA-ENTC2014-0039

PATIENT
  Age: 67 Year
  Sex: Female

DRUGS (2)
  1. STALEVO [Suspect]
     Indication: PARKINSON^S DISEASE
     Dosage: STRENGTH: 200/50/200 MG
     Route: 048
     Dates: start: 20130704, end: 201308
  2. PARLODEL [Concomitant]
     Route: 065

REACTIONS (2)
  - Diarrhoea [Recovered/Resolved]
  - Dehydration [Recovered/Resolved]
